FAERS Safety Report 4684486-3 (Version None)
Quarter: 2005Q2

REPORT INFORMATION
  Report Type: 
  Country: None (occurrence: None)
  Receive Date: 20050606
  Receipt Date: 20050520
  Transmission Date: 20051028
  Serious: Yes (Disabling, Other)
  Sender: FDA-Public Use
  Company Number: 004869

PATIENT
  Sex: Female

DRUGS (1)
  1. AMPHETAMINE SALT COMBO (DEXTROAMPHETAMINE SACCHARATE, AMPHETAMINE ASPA [Suspect]
     Dosage: ORAL
     Route: 048

REACTIONS (3)
  - BLOOD ALUMINIUM INCREASED [None]
  - DEMENTIA ALZHEIMER'S TYPE [None]
  - LEARNING DISABILITY [None]
